FAERS Safety Report 13828206 (Version 1)
Quarter: 2017Q3

REPORT INFORMATION
  Report Type: Spontaneous
  Country: US (occurrence: US)
  Receive Date: 20170802
  Receipt Date: 20170802
  Transmission Date: 20171127
  Serious: Yes (Hospitalization)
  Sender: FDA-Public Use
  Company Number: None

PATIENT
  Age: 62 Year
  Sex: Male
  Weight: 115.08 kg

DRUGS (3)
  1. LINEZOLID. [Suspect]
     Active Substance: LINEZOLID
     Indication: DEPRESSION
     Dates: start: 20170126, end: 20170129
  2. LINEZOLID. [Suspect]
     Active Substance: LINEZOLID
     Indication: CHRONIC KIDNEY DISEASE
     Dates: start: 20170126, end: 20170129
  3. LINEZOLID. [Suspect]
     Active Substance: LINEZOLID
     Indication: DIABETES MELLITUS
     Dates: start: 20170126, end: 20170129

REACTIONS (1)
  - Acute kidney injury [None]

NARRATIVE: CASE EVENT DATE: 20170129
